FAERS Safety Report 19389119 (Version 1)
Quarter: 2021Q2

REPORT INFORMATION
  Report Type: Spontaneous
  Country: US (occurrence: US)
  Receive Date: 20210608
  Receipt Date: 20210608
  Transmission Date: 20210717
  Serious: No
  Sender: FDA-Public Use
  Company Number: US-SAREPTA THERAPEUTICS INC.-SRP2021-001411

PATIENT
  Age: 15 Year
  Sex: Male

DRUGS (1)
  1. AMONDYS 45 [Suspect]
     Active Substance: CASIMERSEN
     Indication: DUCHENNE MUSCULAR DYSTROPHY
     Dosage: 1500 MILLIGRAM, WEEKLY
     Route: 042

REACTIONS (3)
  - Anxiety [Unknown]
  - Product dose omission issue [Unknown]
  - Dehydration [Unknown]

NARRATIVE: CASE EVENT DATE: 20210424
